FAERS Safety Report 19184692 (Version 2)
Quarter: 2021Q2

REPORT INFORMATION
  Report Type: Spontaneous
  Country: US (occurrence: US)
  Receive Date: 20210427
  Receipt Date: 20210519
  Transmission Date: 20210717
  Serious: Yes (Other)
  Sender: FDA-Public Use
  Company Number: US-COOPERSURGICAL, INC.-US-2021CPS001104

PATIENT
  Age: 35 Year
  Sex: Female
  Weight: 54.88 kg

DRUGS (1)
  1. PARAGARD T 380A [Suspect]
     Active Substance: COPPER
     Indication: PRODUCT USED FOR UNKNOWN INDICATION
     Dosage: UNK
     Route: 015
     Dates: start: 20200221, end: 20210505

REACTIONS (3)
  - Device expulsion [Recovered/Resolved]
  - Nephrolithiasis [Unknown]
  - Embedded device [Recovered/Resolved]

NARRATIVE: CASE EVENT DATE: 20210108
